FAERS Safety Report 9721725 (Version 1)
Quarter: 2013Q4

REPORT INFORMATION
  Report Type: Report from Study
  Country: US (occurrence: US)
  Receive Date: 20131201
  Receipt Date: 20131201
  Transmission Date: 20140711
  Serious: No
  Sender: FDA-Public Use
  Company Number: US-ABBVIE-13P-163-1148620-00

PATIENT
  Sex: Male
  Weight: 72.64 kg

DRUGS (6)
  1. ANDROGEL [Suspect]
     Indication: PRODUCT USED FOR UNKNOWN INDICATION
     Dosage: TWO PUMPS DAILY
     Route: 061
  2. ANDROGEL [Suspect]
     Dosage: FOUR PUMPS DAILY
     Route: 061
     Dates: start: 201309
  3. CALCIUM [Concomitant]
     Indication: PRODUCT USED FOR UNKNOWN INDICATION
  4. ALLOPURINOL [Concomitant]
     Indication: PRODUCT USED FOR UNKNOWN INDICATION
  5. FISH OIL [Concomitant]
     Indication: PRODUCT USED FOR UNKNOWN INDICATION
  6. TRIBENZOR [Concomitant]
     Indication: HYPERTENSION

REACTIONS (2)
  - Semen volume decreased [Unknown]
  - Blood testosterone abnormal [Not Recovered/Not Resolved]
